FAERS Safety Report 4329963-X (Version None)
Quarter: 2004Q2

REPORT INFORMATION
  Report Type: 
  Country: None (occurrence: None)
  Receive Date: 20040401
  Receipt Date: 20040324
  Transmission Date: 20050107
  Serious: Yes (Other)
  Sender: FDA-Public Use
  Company Number: IT-MERCK-0403USA02190

PATIENT
  Age: 25 Year
  Sex: Male

DRUGS (4)
  1. ELSPAR [Suspect]
     Indication: ACUTE LYMPHOCYTIC LEUKAEMIA
     Route: 042
  2. DAUNORUBICIN [Suspect]
     Route: 042
  3. PREDNISONE [Concomitant]
     Route: 042
  4. VINCRISTINE SULFATE [Suspect]
     Route: 042

REACTIONS (1)
  - ACUTE MYOCARDIAL INFARCTION [None]
